FAERS Safety Report 8005038-3 (Version None)
Quarter: 2011Q4

REPORT INFORMATION
  Report Type: 
  Country: None (occurrence: None)
  Receive Date: 20111220
  Receipt Date: 20111213
  Transmission Date: 20120403
  Serious: Yes (Death, Hospitalization)
  Sender: FDA-Public Use
  Company Number: 2011SP058251

PATIENT
  Age: 25 Year
  Sex: Male
  Weight: 55 kg

DRUGS (14)
  1. NIDRAN [Concomitant]
  2. ZONISAMIDE [Concomitant]
  3. ONOCOVIN [Concomitant]
  4. COTRIM [Concomitant]
  5. TEMODAL [Suspect]
     Indication: ASTROCYTOMA
     Dosage: SEE IMAGE: PO
     Route: 048
     Dates: start: 20090901, end: 20090905
  6. TEMODAL [Suspect]
     Indication: ASTROCYTOMA
     Dosage: SEE IMAGE: PO
     Route: 048
     Dates: start: 20061027, end: 20070131
  7. TEMODAL [Suspect]
     Indication: ASTROCYTOMA
     Dosage: SEE IMAGE: PO
     Route: 048
     Dates: start: 20060927, end: 20061001
  8. TEMODAL [Suspect]
     Indication: ASTROCYTOMA
     Dosage: SEE IMAGE: PO
     Route: 048
     Dates: start: 20070404, end: 20070729
  9. TEMODAL [Suspect]
     Indication: ASTROCYTOMA
     Dosage: SEE IMAGE: PO
     Route: 048
     Dates: start: 20070829, end: 20070902
  10. TEMODAL [Suspect]
     Indication: ASTROCYTOMA
     Dosage: SEE IMAGE: PO
     Route: 048
     Dates: start: 20070301, end: 20070305
  11. TEMODAL [Suspect]
     Indication: ASTROCYTOMA
     Dosage: SEE IMAGE: PO
     Route: 048
     Dates: start: 20071024, end: 20090726
  12. FAMOTIDINE [Concomitant]
  13. ZOFRAN (ONDANSETRON HYDROCHLORIDE HYDRATE) [Concomitant]
  14. PREDNISOLONE [Concomitant]

REACTIONS (4)
  - NEOPLASM PROGRESSION [None]
  - HERPES ZOSTER [None]
  - DISEASE PROGRESSION [None]
  - METASTASIS [None]
